FAERS Safety Report 12875898 (Version 1)
Quarter: 2016Q4

REPORT INFORMATION
  Report Type: Spontaneous
  Country: US (occurrence: US)
  Receive Date: 20161024
  Receipt Date: 20161024
  Transmission Date: 20170207
  Serious: No
  Sender: FDA-Public Use
  Company Number: US-JAZZ-2016-US-014907

PATIENT
  Sex: Female

DRUGS (30)
  1. NIZORAL [Concomitant]
     Active Substance: KETOCONAZOLE
  2. OMEGA 3 DHA [Concomitant]
  3. RETIN-A [Concomitant]
     Active Substance: TRETINOIN
  4. SALICYLIC ACID. [Concomitant]
     Active Substance: SALICYLIC ACID
  5. SYNALAR [Concomitant]
     Active Substance: FLUOCINOLONE ACETONIDE
  6. TRIAMCINOLONE [Concomitant]
     Active Substance: TRIAMCINOLONE
  7. BIOTIN [Concomitant]
     Active Substance: BIOTIN
  8. FLONASE [Concomitant]
     Active Substance: FLUTICASONE PROPIONATE
  9. IPRATROPIUM BROMIDE. [Concomitant]
     Active Substance: IPRATROPIUM BROMIDE
  10. NASACORT AQ [Concomitant]
     Active Substance: TRIAMCINOLONE ACETONIDE
  11. ZOLPIDEM TARTRATE ER [Concomitant]
     Active Substance: ZOLPIDEM TARTRATE
  12. XYREM [Suspect]
     Active Substance: SODIUM OXYBATE
     Dosage: 4.5 G, BID
     Route: 048
     Dates: start: 200506
  13. MELATONIN [Concomitant]
     Active Substance: MELATONIN
  14. VITAMIN C [Concomitant]
     Active Substance: ASCORBIC ACID
  15. DERMA-SMOOTHE/FS [Concomitant]
     Active Substance: FLUOCINOLONE ACETONIDE
  16. HYDROCORTISONE. [Concomitant]
     Active Substance: HYDROCORTISONE
  17. CLONAZEPAM. [Concomitant]
     Active Substance: CLONAZEPAM
  18. VITAMIN D [Concomitant]
     Active Substance: CHOLECALCIFEROL
  19. XYREM [Suspect]
     Active Substance: SODIUM OXYBATE
     Indication: CATAPLEXY
     Dosage: 2.25 G, BID
     Route: 048
     Dates: start: 200505, end: 200506
  20. AZELASTINE [Concomitant]
     Active Substance: AZELASTINE
  21. DESOWEN [Concomitant]
     Active Substance: DESONIDE
  22. FERROUS GLUCONATE [Concomitant]
     Active Substance: FERROUS GLUCONATE
  23. MEDROXYPROGESTERONE [Concomitant]
     Active Substance: MEDROXYPROGESTERONE
  24. ORTHO TRI CYCLEN LO [Concomitant]
     Active Substance: ETHINYL ESTRADIOL\NORGESTIMATE
  25. XYREM [Suspect]
     Active Substance: SODIUM OXYBATE
     Indication: NARCOLEPSY
     Dosage: 1.5 G, BID
     Route: 048
     Dates: start: 200406, end: 2004
  26. ADDERALL XR [Concomitant]
     Active Substance: AMPHETAMINE ASPARTATE\AMPHETAMINE SULFATE\DEXTROAMPHETAMINE SACCHARATE\DEXTROAMPHETAMINE SULFATE
  27. EPIPEN [Concomitant]
     Active Substance: EPINEPHRINE
  28. LAC-HYDRIN [Concomitant]
     Active Substance: AMMONIUM LACTATE
  29. SPIRONOLACTONE. [Concomitant]
     Active Substance: SPIRONOLACTONE
  30. ATRALIN [Concomitant]
     Active Substance: TRETINOIN

REACTIONS (1)
  - Malaise [Not Recovered/Not Resolved]
